FAERS Safety Report 17216544 (Version 3)
Quarter: 2020Q1

REPORT INFORMATION
  Report Type: Report from Study
  Country: US (occurrence: US)
  Receive Date: 20191230
  Receipt Date: 20200117
  Transmission Date: 20200409
  Serious: Yes (Hospitalization)
  Sender: FDA-Public Use
  Company Number: US-BRISTOL-MYERS SQUIBB COMPANY-BMS-2019-124766

PATIENT
  Age: 59 Year
  Sex: Female

DRUGS (2)
  1. NIVOLUMAB [Suspect]
     Active Substance: NIVOLUMAB
     Indication: LUNG ADENOCARCINOMA
     Dosage: UNK
     Route: 042
  2. PEGILODECAKIN [Suspect]
     Active Substance: PEGILODECAKIN
     Indication: LUNG ADENOCARCINOMA
     Dosage: UNK
     Route: 058
     Dates: start: 201606, end: 201906

REACTIONS (4)
  - Blood bicarbonate decreased [Not Recovered/Not Resolved]
  - Mental status changes [Not Recovered/Not Resolved]
  - Metabolic acidosis [Not Recovered/Not Resolved]
  - Pyrexia [Not Recovered/Not Resolved]
